FAERS Safety Report 19287198 (Version 1)
Quarter: 2021Q2

REPORT INFORMATION
  Report Type: Report from Study
  Country: None (occurrence: US)
  Receive Date: 20210522
  Receipt Date: 20210522
  Transmission Date: 20210717
  Serious: Yes (Other)
  Sender: FDA-Public Use
  Company Number: US-ABBVIE-21K-163-3913807-00

PATIENT
  Sex: Female

DRUGS (1)
  1. HUMIRA [Suspect]
     Active Substance: ADALIMUMAB
     Indication: CROHN^S DISEASE
     Dosage: CITRATE FREE
     Route: 058

REACTIONS (10)
  - Bone operation [Recovering/Resolving]
  - Immune thrombocytopenia [Unknown]
  - Seasonal allergy [Unknown]
  - Malaise [Recovering/Resolving]
  - Platelet count decreased [Unknown]
  - Food allergy [Unknown]
  - Fatigue [Not Recovered/Not Resolved]
  - Procedural pain [Recovering/Resolving]
  - Erythema [Recovered/Resolved]
  - Dysphonia [Unknown]
